FAERS Safety Report 8897320 (Version 1)
Quarter: 2012Q4

REPORT INFORMATION
  Report Type: 
  Country: US (occurrence: US)
  Receive Date: 20121108
  Receipt Date: 20121108
  Transmission Date: 20130627
  Serious: No
  Sender: FDA-Public Use
  Company Number: US-AMGEN-USASP2012029125

PATIENT
  Age: 36 Year
  Sex: Female

DRUGS (5)
  1. ENBREL [Suspect]
     Indication: PRODUCT USED FOR UNKNOWN INDICATION
     Dosage: 50 mg, qwk
     Route: 058
  2. METHOTREXAT                        /00113801/ [Concomitant]
     Dosage: 2.5 mg, UNK
  3. LEUCOVORIN CA [Concomitant]
     Dosage: 25 mg, UNK
  4. FOLIC ACID [Concomitant]
     Dosage: 1 mg, UNK
  5. FLONASE [Concomitant]
     Dosage: 0.05 %, UNK

REACTIONS (2)
  - Injection site bruising [Unknown]
  - Injection site erythema [Unknown]
